FAERS Safety Report 8262949-1 (Version None)
Quarter: 2012Q2

REPORT INFORMATION
  Report Type: 
  Country: None (occurrence: None)
  Receive Date: 20120405
  Receipt Date: 20120330
  Transmission Date: 20120825
  Serious: Yes (Life-Threatening, Other)
  Sender: FDA-Public Use
  Company Number: GB-BRISTOL-MYERS SQUIBB COMPANY-16489353

PATIENT
  Age: 28 Year
  Sex: Male
  Weight: 80 kg

DRUGS (22)
  1. ZOPLICONE [Concomitant]
  2. ACETAMINOPHEN [Concomitant]
     Dosage: 4 TIMES A DAY WHEN REQUIRED
     Route: 047
  3. VITAMINS NOS [Concomitant]
     Dosage: CAPSULES
     Route: 048
  4. SODIUM CHLORIDE [Concomitant]
  5. AZTREONAM [Suspect]
     Indication: INFECTIVE PULMONARY EXACERBATION OF CYSTIC FIBROSIS
     Route: 040
     Dates: start: 20111201
  6. AZITHROMYCIN [Concomitant]
     Dosage: TAKEN ON MONDAYS, WEDNESDAYS, FRIDAYS
     Route: 048
     Dates: start: 20010401
  7. CREON [Concomitant]
     Route: 048
  8. MINOCYCLINE HYDROCHLORIDE [Concomitant]
  9. HEPARIN [Concomitant]
     Route: 042
  10. CYCLIZINE [Concomitant]
     Dosage: WHEN REQUIRED
     Route: 048
  11. URSODIOL [Concomitant]
     Route: 048
  12. SERTRALINE HYDROCHLORIDE [Concomitant]
     Route: 048
  13. TRAZODONE HCL [Concomitant]
     Dosage: 50MG TO 100MG AT NIGHT WHEN REQUIRED. SHORT TERM.
     Route: 048
  14. PULMOZYME [Concomitant]
     Route: 055
  15. ALBUTEROL [Concomitant]
     Route: 055
  16. DULOXETINE HYDROCHLORIDE [Concomitant]
  17. CODEINE PHOSPHATE [Concomitant]
     Dosage: 60MG FOUR TO SIX HOURLY WHEN REQUIRED
     Route: 048
  18. ESOMEPRAZOLE [Concomitant]
     Dosage: EVERY 4-6 HOURS
     Route: 048
  19. POLYETHYLENE GLYCOL [Concomitant]
     Dosage: EVERY 4 TO 6 HOURS
     Route: 048
  20. FLUTICASONE PROPIONATE/SALMETEROL [Concomitant]
     Route: 055
  21. VITAMIN E [Concomitant]
     Route: 048
  22. IBUPROFEN [Concomitant]

REACTIONS (1)
  - ANAPHYLACTIC REACTION [None]
